FAERS Safety Report 5265709-9 (Version None)
Quarter: 2007Q1

REPORT INFORMATION
  Report Type: 
  Country: None (occurrence: None)
  Receive Date: 20061213
  Receipt Date: 20030918
  Transmission Date: 20070707
  Serious: Yes (Other)
  Sender: FDA-Public Use
  Company Number: 2003UW11978

PATIENT
  Age: 79 Year
  Sex: Male

DRUGS (7)
  1. IRESSA [Suspect]
     Indication: PANCREATIC CARCINOMA METASTATIC
     Dosage: 250 MG DAILY PO
     Route: 048
     Dates: start: 20030721
  2. PROTONIX [Concomitant]
  3. LIPRAM [Concomitant]
  4. MORPHINE SL [Concomitant]
  5. DURAGESIC-100 [Concomitant]
  6. ATIVAN [Concomitant]
  7. WELLBUTRIN [Concomitant]

REACTIONS (2)
  - FATIGUE [None]
  - HYPOTHERMIA [None]
